FAERS Safety Report 5678265-8 (Version None)
Quarter: 2008Q1

REPORT INFORMATION
  Report Type: 
  Country: None (occurrence: None)
  Receive Date: 20080319
  Receipt Date: 20080305
  Transmission Date: 20080703
  Serious: Yes (Hospitalization)
  Sender: FDA-Public Use
  Company Number: 02100-JPN-07-0330

PATIENT
  Age: 65 Year
  Sex: Male
  Weight: 58.5 kg

DRUGS (11)
  1. PLETAAL (CILOSTAZOL)(CODE NOT BROKEN) [Suspect]
     Dosage: BLINDED, INFORMATION WITHHELD
     Dates: start: 20041020, end: 20070523
  2. PLETAAL (CILOSTAZOL)(CODE NOT BROKEN) [Suspect]
     Dosage: BLINDED, INFORMATION WITHHELD
     Dates: start: 20070530, end: 20070603
  3. PLETAAL (CILOSTAZOL)(CODE NOT BROKEN) [Suspect]
     Dosage: BLINDED, INFORMATION WITHHELD
     Dates: start: 20070612, end: 20070713
  4. PLETAAL (CILOSTAZOL)(CODE NOT BROKEN) [Suspect]
     Dosage: BLINDED, INFORMATION WITHHELD
     Dates: start: 20070722, end: 20070814
  5. PLETAAL (CILOSTAZOL)(CODE NOT BROKEN) [Suspect]
     Dosage: BLINDED, INFORMATION WITHHELD
     Dates: start: 20070821, end: 20070914
  6. PLETAAL (CILOSTAZOL)(CODE NOT BROKEN) [Suspect]
     Dosage: BLINDED, INFORMATION WITHHELD
     Dates: start: 20070922, end: 20071013
  7. PLETAAL (CILOSTAZOL)(CODE NOT BROKEN) [Suspect]
     Dosage: BLINDED, INFORMATION WITHHELD
     Dates: start: 20071022, end: 20080228
  8. PLETAAL (CILOSTAZOL)(CODE NOT BROKEN) [Suspect]
     Dosage: BLINDED, INFORMATION WITHHELD
     Dates: start: 20080308
  9. NIVADIL (NILVADIPINE) TABLET [Concomitant]
  10. DIOVAN [Concomitant]
  11. LIPITOR [Concomitant]

REACTIONS (2)
  - CALCULUS URETERIC [None]
  - GASTRIC ADENOMA [None]
